FAERS Safety Report 11300945 (Version 1)
Quarter: 2015Q3

REPORT INFORMATION
  Report Type: Spontaneous
  Country: US (occurrence: None)
  Receive Date: 20150723
  Receipt Date: 20150723
  Transmission Date: 20151125
  Serious: Yes (Hospitalization)
  Sender: FDA-Public Use
  Company Number: None

PATIENT
  Age: 57 Year
  Sex: Male

DRUGS (1)
  1. PLEGRIDY [Suspect]
     Active Substance: PEGINTERFERON BETA-1A
     Indication: MULTIPLE SCLEROSIS
     Dosage: 63MG ON DAY 1 THEN 94MG ON DAY 15 Q2W SQ
     Route: 058
     Dates: start: 20150708, end: 20150721

REACTIONS (3)
  - Monoplegia [None]
  - Fall [None]
  - Paralysis [None]

NARRATIVE: CASE EVENT DATE: 20150708
